FAERS Safety Report 4825659-6 (Version None)
Quarter: 2005Q4

REPORT INFORMATION
  Report Type: 
  Country: None (occurrence: None)
  Receive Date: 20051109
  Receipt Date: 20051101
  Transmission Date: 20060501
  Serious: Yes (Hospitalization)
  Sender: FDA-Public Use
  Company Number: 163-20785-05100242

PATIENT
  Age: 72 Year
  Sex: Male

DRUGS (1)
  1. THALOMID [Suspect]
     Indication: HAIRY CELL LEUKAEMIA
     Dosage: 100 MG, DAILY, ORAL
     Route: 048
     Dates: start: 20030926, end: 20050101

REACTIONS (5)
  - CONDITION AGGRAVATED [None]
  - INTESTINAL PERFORATION [None]
  - PERITONEAL DIALYSIS [None]
  - PERITONITIS [None]
  - RENAL FAILURE CHRONIC [None]
